FAERS Safety Report 11119310 (Version 2)
Quarter: 2015Q2

REPORT INFORMATION
  Report Type: Spontaneous
  Country: US (occurrence: US)
  Receive Date: 20150518
  Receipt Date: 20150610
  Transmission Date: 20150821
  Serious: No
  Sender: FDA-Public Use
  Company Number: US-PFIZER INC-2015165817

PATIENT
  Age: 64 Year
  Sex: Female

DRUGS (4)
  1. BIESTROGEN [Concomitant]
  2. NATURE-THROID [Concomitant]
     Active Substance: THYROID, PORCINE
     Dosage: 65 MG
  3. PROGESTERONE. [Concomitant]
     Active Substance: PROGESTERONE
     Dosage: 200 MG
  4. GENOTROPIN [Suspect]
     Active Substance: SOMATROPIN
     Indication: HYPOPITUITARISM
     Dosage: ^.02 MG^, UNK
     Dates: start: 2006

REACTIONS (6)
  - Myalgia [Unknown]
  - Myositis [Unknown]
  - Bone pain [Recovered/Resolved]
  - Arthralgia [Recovered/Resolved]
  - Arthritis [Unknown]
  - Fasciitis [Unknown]

NARRATIVE: CASE EVENT DATE: 2015
